FAERS Safety Report 7984456-3 (Version None)
Quarter: 2011Q4

REPORT INFORMATION
  Report Type: 
  Country: None (occurrence: None)
  Receive Date: 20111216
  Receipt Date: 20111204
  Transmission Date: 20120403
  Serious: Yes (Other)
  Sender: FDA-Public Use
  Company Number: JP-ELI_LILLY_AND_COMPANY-JP201112001940

PATIENT
  Age: 83 Year
  Sex: Female

DRUGS (2)
  1. ENSURE                             /06184901/ [Concomitant]
     Dosage: UNK
     Route: 048
  2. FORTEO [Suspect]
     Dosage: UNK
     Route: 058
     Dates: start: 20111117

REACTIONS (3)
  - DECREASED APPETITE [None]
  - CONVULSION [None]
  - NAUSEA [None]
